FAERS Safety Report 9222948 (Version 1)
Quarter: 2013Q2

REPORT INFORMATION
  Report Type: Spontaneous
  Country: US (occurrence: US)
  Receive Date: 20130410
  Receipt Date: 20130410
  Transmission Date: 20140414
  Serious: Yes (Other)
  Sender: FDA-Public Use
  Company Number: US-NOVEN-13US006487

PATIENT
  Age: 7 Year
  Sex: Male

DRUGS (1)
  1. DAYTRANA [Suspect]
     Indication: ATTENTION DEFICIT/HYPERACTIVITY DISORDER
     Dosage: 15 MG, UNK
     Route: 062
     Dates: start: 201207, end: 20130315

REACTIONS (4)
  - Platelet count decreased [Not Recovered/Not Resolved]
  - Biopsy bone marrow abnormal [Unknown]
  - White blood cell count decreased [Not Recovered/Not Resolved]
  - Contusion [Unknown]
